FAERS Safety Report 6648540-9 (Version None)
Quarter: 2010Q1

REPORT INFORMATION
  Report Type: 
  Country: None (occurrence: None)
  Receive Date: 20100319
  Receipt Date: 20100226
  Transmission Date: 20100710
  Serious: Yes (Hospitalization)
  Sender: FDA-Public Use
  Company Number: 201003IM000978

PATIENT
  Age: 64 Year
  Sex: Male

DRUGS (3)
  1. ACTIMMUNE [Suspect]
     Indication: IDIOPATHIC PULMONARY FIBROSIS
     Dosage: 200 UG, T.I.W., SUBCUTANEOUS
     Route: 058
  2. VANCOMYCIN [Suspect]
     Indication: PNEUMONIA
     Dosage: 1 GM, OVER 18 H X 7 D, INTRAVENOUS
     Route: 042
     Dates: start: 20100218, end: 20100224
  3. ZOSYN [Suspect]
     Indication: PNEUMONIA
     Dosage: 3.375 GM, Q 6H X 7D, INTRAVENOUS
     Route: 042
     Dates: start: 20100218, end: 20100224

REACTIONS (2)
  - PNEUMONIA [None]
  - WHITE BLOOD CELL COUNT DECREASED [None]
